FAERS Safety Report 26007808 (Version 1)
Quarter: 2025Q4

REPORT INFORMATION
  Report Type: Spontaneous
  Country: EU (occurrence: EU)
  Receive Date: 20251106
  Receipt Date: 20251106
  Transmission Date: 20260118
  Serious: Yes (Hospitalization, Other)
  Sender: NOVO NORDISK
  Company Number: EU-NOVOPROD-1553504

PATIENT
  Age: 31 Year
  Sex: Female

DRUGS (1)
  1. OZEMPIC [Suspect]
     Active Substance: SEMAGLUTIDE
     Indication: Weight control
     Dosage: UNK
     Route: 058

REACTIONS (4)
  - Hypoglycaemic coma [Recovered/Resolved]
  - Product use in unapproved indication [Unknown]
  - Prescription drug used without a prescription [Unknown]
  - Counterfeit product administered [Unknown]
